FAERS Safety Report 5356322-3 (Version None)
Quarter: 2007Q2

REPORT INFORMATION
  Report Type: 
  Country: None (occurrence: None)
  Receive Date: 20070613
  Receipt Date: 20070601
  Transmission Date: 20071010
  Serious: Yes (Other)
  Sender: FDA-Public Use
  Company Number: FR-PFIZER INC-2007046101

PATIENT
  Sex: Female

DRUGS (3)
  1. ZOLOFT [Suspect]
     Indication: MAJOR DEPRESSION
     Route: 048
     Dates: start: 20070101, end: 20070301
  2. LEXOMIL [Suspect]
     Indication: DEPRESSION
     Route: 048
  3. ATARAX [Suspect]
     Indication: MAJOR DEPRESSION
     Dosage: DAILY DOSE:50MG

REACTIONS (2)
  - DRUG DEPENDENCE [None]
  - HEPATITIS [None]
